FAERS Safety Report 8305256-0 (Version None)
Quarter: 2012Q2

REPORT INFORMATION
  Report Type: 
  Country: None (occurrence: None)
  Receive Date: 20120423
  Receipt Date: 20120417
  Transmission Date: 20120825
  Serious: Yes (Life-Threatening, Hospitalization, Other)
  Sender: FDA-Public Use
  Company Number: US-ASTRAZENECA-2011SE36989

PATIENT
  Age: 56 Year
  Sex: Female
  Weight: 59 kg

DRUGS (7)
  1. LAMOTRGINE [Concomitant]
     Dosage: DOSE WAS INCREASED
     Route: 048
     Dates: start: 20111001
  2. SEROQUEL [Suspect]
     Indication: DEPRESSION
     Route: 048
     Dates: start: 20100101
  3. VALIUM [Concomitant]
  4. LAMACTONE [Concomitant]
  5. SEROQUEL [Suspect]
     Indication: NERVOUSNESS
     Route: 048
     Dates: start: 20100101
  6. LAMOTRGINE [Concomitant]
     Indication: EPILEPSY
     Route: 048
     Dates: start: 19960101
  7. CIPALOPRAM [Concomitant]

REACTIONS (16)
  - BRONCHITIS [None]
  - INTENTIONAL DRUG MISUSE [None]
  - CRYING [None]
  - AGITATION [None]
  - LETHARGY [None]
  - THERAPEUTIC RESPONSE UNEXPECTED [None]
  - DEPRESSION [None]
  - MALAISE [None]
  - NERVOUSNESS [None]
  - NIGHTMARE [None]
  - CEREBROVASCULAR ACCIDENT [None]
  - VAGINAL CANCER [None]
  - MENTAL DISORDER [None]
  - TACHYPHRENIA [None]
  - COMA [None]
  - OFF LABEL USE [None]
